FAERS Safety Report 8805358 (Version 3)
Quarter: 2012Q4

REPORT INFORMATION
  Report Type: 
  Country: US (occurrence: US)
  Receive Date: 20120924
  Receipt Date: 20121016
  Transmission Date: 20130627
  Serious: No
  Sender: FDA-Public Use
  Company Number: US-PFIZER INC-2012232125

PATIENT
  Age: 81 Year
  Sex: Female
  Weight: 41.72 kg

DRUGS (4)
  1. LATANOPROST [Suspect]
     Dosage: UNK, 1x/day
     Route: 047
     Dates: end: 2012
  2. MIRAPEX [Concomitant]
     Indication: PARKINSON^S DISEASE
     Dosage: 1.5 mg, daily
     Route: 048
  3. PREDNISOLONE [Concomitant]
     Indication: RHEUMATOID ARTHRITIS
     Dosage: 5 mg, daily
  4. LEVODOPA-CARBIDOPA [Concomitant]
     Dosage: 25-100 mg, every 4 hrs

REACTIONS (2)
  - Product dropper issue [Recovered/Resolved]
  - Vision blurred [Recovered/Resolved]
